FAERS Safety Report 11627293 (Version 2)
Quarter: 2016Q1

REPORT INFORMATION
  Report Type: Spontaneous
  Country: US (occurrence: US)
  Receive Date: 20151013
  Receipt Date: 20160205
  Transmission Date: 20160525
  Serious: No
  Sender: FDA-Public Use
  Company Number: US-AMGEN-USASP2015064347

PATIENT
  Age: 74 Year
  Sex: Female

DRUGS (2)
  1. NEULASTA [Suspect]
     Active Substance: PEGFILGRASTIM
     Indication: UTERINE CANCER
     Dosage: UNK UNK, UNK
     Route: 065
  2. NEUPOGEN [Suspect]
     Active Substance: FILGRASTIM
     Indication: UTERINE CANCER
     Dosage: UNK UNK, UNK
     Route: 065

REACTIONS (1)
  - Off label use [Unknown]
